FAERS Safety Report 4716338-4 (Version None)
Quarter: 2005Q3

REPORT INFORMATION
  Report Type: 
  Country: None (occurrence: None)
  Receive Date: 20050711
  Receipt Date: 20050530
  Transmission Date: 20060218
  Serious: Yes (Other)
  Sender: FDA-Public Use
  Company Number: ENTC2005-0144

PATIENT

DRUGS (1)
  1. STALEVO 100 [Suspect]
     Dates: start: 20050501

REACTIONS (2)
  - CONFUSIONAL STATE [None]
  - DISORIENTATION [None]
